FAERS Safety Report 8209013-5 (Version None)
Quarter: 2012Q1

REPORT INFORMATION
  Report Type: 
  Country: None (occurrence: None)
  Receive Date: 20120314
  Receipt Date: 20120313
  Transmission Date: 20120608
  Serious: Yes (Other)
  Sender: FDA-Public Use
  Company Number: DE-BAYER-2012-024361

PATIENT
  Sex: Male

DRUGS (1)
  1. AVELOX [Suspect]

REACTIONS (5)
  - HEARING IMPAIRED [None]
  - ABDOMINAL PAIN UPPER [None]
  - LACTOSE INTOLERANCE [None]
  - HYPOAESTHESIA [None]
  - COELIAC DISEASE [None]
